FAERS Safety Report 18336013 (Version 1)
Quarter: 2020Q4

REPORT INFORMATION
  Report Type: Spontaneous
  Country: CA (occurrence: CA)
  Receive Date: 20201001
  Receipt Date: 20201001
  Transmission Date: 20210113
  Serious: Yes (Death)
  Sender: FDA-Public Use
  Company Number: CA-TEVA-2020-CA-1833553

PATIENT
  Age: 74 Year
  Sex: Male

DRUGS (8)
  1. HYDROMORPHONE [Concomitant]
     Active Substance: HYDROMORPHONE
     Route: 065
  2. PREDNISONE. [Concomitant]
     Active Substance: PREDNISONE
     Route: 065
  3. OXYCODONE [Suspect]
     Active Substance: OXYCODONE
     Route: 065
  4. PREGABALIN. [Concomitant]
     Active Substance: PREGABALIN
     Route: 065
  5. LYRICA [Suspect]
     Active Substance: PREGABALIN
     Route: 065
  6. RITUXIMAB. [Suspect]
     Active Substance: RITUXIMAB
     Route: 042
  7. RITUXIMAB. [Suspect]
     Active Substance: RITUXIMAB
     Route: 065
  8. TANTUM [BENZYDAMINE HYDROCHLORIDE] [Concomitant]
     Route: 065

REACTIONS (5)
  - Pemphigus [Fatal]
  - Pneumonia [Fatal]
  - Mouth ulceration [Fatal]
  - Constipation [Fatal]
  - Ulcer [Fatal]
